FAERS Safety Report 6999472-8 (Version None)
Quarter: 2010Q3

REPORT INFORMATION
  Report Type: 
  Country: None (occurrence: None)
  Receive Date: 20100920
  Receipt Date: 20070911
  Transmission Date: 20110219
  Serious: Yes (Other)
  Sender: FDA-Public Use
  Company Number: US-ASTRAZENECA-2006UW08462

PATIENT
  Age: 427 Month
  Sex: Female
  Weight: 106.4 kg

DRUGS (10)
  1. SEROQUEL [Suspect]
     Indication: DEPRESSION
     Dosage: 25 MG TO 50 MG
     Route: 048
     Dates: start: 20050501, end: 20060101
  2. SEROQUEL [Suspect]
     Indication: BIPOLAR DISORDER
     Dosage: 25 MG TO 50 MG
     Route: 048
     Dates: start: 20050501, end: 20060101
  3. SEROQUEL [Suspect]
     Indication: ANXIETY
     Dosage: 25 MG TO 50 MG
     Route: 048
     Dates: start: 20050501, end: 20060101
  4. SEROQUEL [Suspect]
     Dosage: 75-200 MG
     Route: 048
     Dates: start: 20050524
  5. SEROQUEL [Suspect]
     Dosage: 75-200 MG
     Route: 048
     Dates: start: 20050524
  6. SEROQUEL [Suspect]
     Dosage: 75-200 MG
     Route: 048
     Dates: start: 20050524
  7. SEROQUEL [Suspect]
     Route: 048
  8. SEROQUEL [Suspect]
     Route: 048
  9. SEROQUEL [Suspect]
     Route: 048
  10. CYMBALTA [Concomitant]
     Dosage: 60 MG  TO 120 MG
     Dates: start: 20050501

REACTIONS (1)
  - DIABETIC KETOACIDOSIS [None]
